FAERS Safety Report 19430114 (Version 2)
Quarter: 2021Q4

REPORT INFORMATION
  Report Type: Spontaneous
  Country: LT (occurrence: LT)
  Receive Date: 20210617
  Receipt Date: 20211208
  Transmission Date: 20220304
  Serious: Yes (Other)
  Sender: FDA-Public Use
  Company Number: LT-MYLANLABS-2021M1034829

PATIENT
  Age: 67 Year
  Sex: Female

DRUGS (10)
  1. DULOXETINE [Suspect]
     Active Substance: DULOXETINE
     Indication: Migraine prophylaxis
     Dosage: 30 MILLIGRAM
     Dates: start: 201008
  2. DULOXETINE [Suspect]
     Active Substance: DULOXETINE
     Indication: Migraine
     Dosage: 60 MILLIGRAM
     Route: 065
     Dates: start: 202005
  3. DULOXETINE [Suspect]
     Active Substance: DULOXETINE
     Dosage: 30 MILLIGRAM
     Dates: start: 202005
  4. AMITRIPTYLINE [Suspect]
     Active Substance: AMITRIPTYLINE
     Indication: Migraine prophylaxis
     Dosage: 25 MILLIGRAM
     Route: 065
  5. METOPROLOL [Suspect]
     Active Substance: METOPROLOL
     Indication: Migraine prophylaxis
     Dosage: 50 MILLIGRAM
     Route: 065
     Dates: start: 2020
  6. GABAPENTIN [Suspect]
     Active Substance: GABAPENTIN
     Indication: Migraine prophylaxis
     Dosage: 300 MILLIGRAM
     Route: 065
  7. GABAPENTIN [Suspect]
     Active Substance: GABAPENTIN
     Indication: Migraine
  8. TOPIRAMATE [Suspect]
     Active Substance: TOPIRAMATE
     Indication: Migraine
     Dosage: 12.5 MILLIGRAM
     Route: 065
     Dates: start: 2020
  9. TOPIRAMATE [Suspect]
     Active Substance: TOPIRAMATE
     Indication: Migraine prophylaxis
     Dosage: 25 MILLIGRAM
     Route: 065
     Dates: start: 2020
  10. SUMATRIPTAN [Suspect]
     Active Substance: SUMATRIPTAN
     Indication: Migraine
     Dosage: UNK
     Route: 065

REACTIONS (8)
  - Myocardial infarction [Unknown]
  - Sedation [Unknown]
  - Weight increased [Unknown]
  - Drug ineffective [Unknown]
  - Bradyphrenia [Unknown]
  - Headache [Unknown]
  - Dyslipidaemia [Unknown]
  - Off label use [Unknown]

NARRATIVE: CASE EVENT DATE: 20200401
